FAERS Safety Report 8968332 (Version 2)
Quarter: 2012Q4

REPORT INFORMATION
  Report Type: 
  Country: US (occurrence: US)
  Receive Date: 20121217
  Receipt Date: 20121222
  Transmission Date: 20130627
  Serious: Yes (Other)
  Sender: FDA-Public Use
  Company Number: US-TEVA-375829USA

PATIENT
  Sex: Female

DRUGS (1)
  1. ACTIQ [Suspect]
     Route: 002
     Dates: start: 2004

REACTIONS (3)
  - Oral surgery [Unknown]
  - Dental caries [Unknown]
  - Pain [Not Recovered/Not Resolved]
